FAERS Safety Report 7957032-6 (Version None)
Quarter: 2011Q4

REPORT INFORMATION
  Report Type: 
  Country: None (occurrence: None)
  Receive Date: 20111205
  Receipt Date: 20111205
  Transmission Date: 20120403
  Serious: Yes (Other)
  Sender: FDA-Public Use
  Company Number: None

PATIENT
  Age: 36 Year
  Sex: Female
  Weight: 90.718 kg

DRUGS (1)
  1. SERTRALINE HYDROCHLORIDE [Suspect]
     Indication: SEASONAL AFFECTIVE DISORDER
     Dosage: 25 MG
     Route: 048
     Dates: start: 20111201, end: 20111203

REACTIONS (3)
  - HAEMATOCHEZIA [None]
  - DIARRHOEA [None]
  - ASTHENIA [None]
